FAERS Safety Report 25894819 (Version 1)
Quarter: 2025Q4

REPORT INFORMATION
  Report Type: Spontaneous
  Country: EG (occurrence: EG)
  Receive Date: 20251008
  Receipt Date: 20251008
  Transmission Date: 20260117
  Serious: Yes (Hospitalization, Other)
  Sender: HIKMA
  Company Number: EG-HIKMA PHARMACEUTICALS-EG-H14001-25-10864

PATIENT
  Age: 57 Year
  Sex: Female
  Weight: 42 kg

DRUGS (10)
  1. IRINOTECAN [Suspect]
     Active Substance: IRINOTECAN
     Indication: Colorectal cancer metastatic
     Dosage: 234 MILLIGRAM, QOW, OVER 90 MINUTES
     Route: 041
  2. IRINOTECAN [Suspect]
     Active Substance: IRINOTECAN
     Dosage: 234 MILLIGRAM, QOW, OVER 90 MINUTES
     Route: 041
     Dates: start: 20250806
  3. LEUCOVORIN CALCIUM [Suspect]
     Active Substance: LEUCOVORIN CALCIUM
     Indication: Colorectal cancer metastatic
     Dosage: 260 MILLIGRAM, QOW, OVER 2 HOURS FOR 2 DAYS
     Route: 041
  4. LEUCOVORIN CALCIUM [Suspect]
     Active Substance: LEUCOVORIN CALCIUM
     Dosage: 260 MILLIGRAM, QOW, OVER 2 HOURS FOR 2 DAYS
     Route: 041
     Dates: start: 20250806
  5. FLUOROURACIL [Suspect]
     Active Substance: FLUOROURACIL
     Indication: Colorectal cancer metastatic
     Dosage: 1300 MILLIGRAM, QOW, OVER 23 HOURS FOR 2 DAYS
     Route: 041
  6. FLUOROURACIL [Suspect]
     Active Substance: FLUOROURACIL
     Dosage: 1300 MILLIGRAM, QOW, OVER 23 HOURS FOR 2 DAYS
     Route: 041
     Dates: start: 20250806
  7. VECTIBIX [Suspect]
     Active Substance: PANITUMUMAB
     Indication: Colorectal cancer metastatic
     Dosage: 252 MILLIGRAM, QOW OVER 60 MINUTES
     Route: 041
  8. VECTIBIX [Suspect]
     Active Substance: PANITUMUMAB
     Dosage: 252 MILLIGRAM, QOW OVER 60 MINUTES
     Route: 041
     Dates: start: 20250806
  9. DEXAMETHASONE [Concomitant]
     Active Substance: DEXAMETHASONE
     Indication: Chemotherapy side effect prophylaxis
     Dosage: UNK
     Route: 042
  10. EM EX [Concomitant]
     Indication: Chemotherapy side effect prophylaxis
     Dosage: UNK
     Route: 042

REACTIONS (11)
  - Febrile neutropenia [Not Recovered/Not Resolved]
  - Cough [Not Recovered/Not Resolved]
  - Fatigue [Not Recovered/Not Resolved]
  - Vomiting [Not Recovered/Not Resolved]
  - Leukopenia [Not Recovered/Not Resolved]
  - Thrombocytopenia [Not Recovered/Not Resolved]
  - Hypoalbuminaemia [Not Recovered/Not Resolved]
  - General physical health deterioration [Not Recovered/Not Resolved]
  - Blood pressure decreased [Not Recovered/Not Resolved]
  - Chest pain [Not Recovered/Not Resolved]
  - Blood creatinine increased [Not Recovered/Not Resolved]

NARRATIVE: CASE EVENT DATE: 20250813
